FAERS Safety Report 5616516-6 (Version None)
Quarter: 2008Q1

REPORT INFORMATION
  Report Type: 
  Country: None (occurrence: None)
  Receive Date: 20080207
  Receipt Date: 20080130
  Transmission Date: 20080703
  Serious: Yes (Hospitalization, Other)
  Sender: FDA-Public Use
  Company Number: US-BRISTOL-MYERS SQUIBB COMPANY-14066591

PATIENT
  Age: 34 Year
  Sex: Female

DRUGS (4)
  1. CYTOXAN [Suspect]
     Indication: MULTIPLE SCLEROSIS
     Route: 042
  2. ATIVAN [Suspect]
     Indication: ANXIETY
     Route: 041
     Dates: start: 20070531, end: 20070531
  3. REBIF [Suspect]
     Indication: MULTIPLE SCLEROSIS
     Dosage: STOPPED ON 30MAY07;RESTARTED ON 18JUN07,DOSE:22MCG,3/1/WK,SC TO SEP07.
     Route: 058
     Dates: start: 20040714
  4. CORTICOSTEROID [Concomitant]

REACTIONS (3)
  - NEUTROPENIA [None]
  - OVERDOSE [None]
  - SOMNOLENCE [None]
